FAERS Safety Report 4277333-5 (Version None)
Quarter: 2004Q1

REPORT INFORMATION
  Report Type: 
  Country: None (occurrence: None)
  Receive Date: 20040121
  Receipt Date: 20040121
  Transmission Date: 20041129
  Serious: No
  Sender: FDA-Public Use
  Company Number: None

PATIENT
  Age: 50 Year
  Sex: Male

DRUGS (2)
  1. DIGOXIN [Suspect]
     Dosage: 0.125MG  DAILY  ORAL
     Route: 048
     Dates: start: 20030730, end: 20030804
  2. DIGOXIN [Suspect]
     Dosage: 0.125MG Q.O.D. INTRAVENOUS
     Route: 042
     Dates: start: 20030806, end: 20030817

REACTIONS (6)
  - BRADYCARDIA [None]
  - CORONARY ARTERY STENOSIS [None]
  - DRUG LEVEL INCREASED [None]
  - HYPERKALAEMIA [None]
  - LEG AMPUTATION [None]
  - NODAL RHYTHM [None]
